FAERS Safety Report 21730703 (Version 1)
Quarter: 2022Q4

REPORT INFORMATION
  Report Type: Spontaneous
  Country: US (occurrence: US)
  Receive Date: 20221215
  Receipt Date: 20221215
  Transmission Date: 20230113
  Serious: No
  Sender: FDA-Public Use
  Company Number: US-PRINSTON PHARMACEUTICAL INC.-2022PRN00127

PATIENT
  Sex: Male

DRUGS (1)
  1. RISPERIDONE [Suspect]
     Active Substance: RISPERIDONE
     Indication: Autism spectrum disorder
     Dosage: 1.5 MG, 2X/DAY

REACTIONS (4)
  - Fatigue [Unknown]
  - Incorrect dosage administered [Unknown]
  - Wrong technique in product usage process [Unknown]
  - Product storage error [Unknown]
